FAERS Safety Report 15249667 (Version 1)
Quarter: 2018Q3

REPORT INFORMATION
  Report Type: Spontaneous
  Country: US (occurrence: US)
  Receive Date: 20180716
  Receipt Date: 20180716
  Transmission Date: 20181010
  Serious: Yes (Death)
  Sender: FDA-Public Use
  Company Number: None

PATIENT

DRUGS (4)
  1. TYLENOL [Concomitant]
     Active Substance: ACETAMINOPHEN
  2. ACID CONTROL [Concomitant]
     Active Substance: FAMOTIDINE
  3. IRON [Concomitant]
     Active Substance: IRON
  4. SUTENT [Suspect]
     Active Substance: SUNITINIB MALATE
     Indication: RENAL NEOPLASM
     Route: 048
     Dates: start: 20180621

REACTIONS (1)
  - Death [None]
